FAERS Safety Report 6771607-1 (Version None)
Quarter: 2010Q2

REPORT INFORMATION
  Report Type: 
  Country: None (occurrence: None)
  Receive Date: 20100616
  Receipt Date: 20100604
  Transmission Date: 20101027
  Serious: Yes (Other)
  Sender: FDA-Public Use
  Company Number: PHHY2010BR36600

PATIENT
  Sex: Male

DRUGS (1)
  1. DIOVAN AMLO [Suspect]
     Dosage: 80/5 MG

REACTIONS (1)
  - BLOOD PRESSURE INCREASED [None]
